FAERS Safety Report 24804154 (Version 1)
Quarter: 2025Q1

REPORT INFORMATION
  Report Type: Spontaneous
  Country: US (occurrence: None)
  Receive Date: 20250102
  Receipt Date: 20250102
  Transmission Date: 20250409
  Serious: Yes (Hospitalization)
  Sender: FDA-CTU
  Company Number: None

PATIENT
  Sex: Female

DRUGS (4)
  1. ENTECAVIR [Suspect]
     Active Substance: ENTECAVIR
     Indication: Angioimmunoblastic T-cell lymphoma
     Dosage: FREQUENCY : DAILY;?
     Route: 048
     Dates: start: 202410
  2. COPIKTRA [Suspect]
     Active Substance: DUVELISIB
  3. ENTECAVIR [Concomitant]
     Active Substance: ENTECAVIR
  4. COPIKTRA [Concomitant]
     Active Substance: DUVELISIB

REACTIONS (1)
  - Pneumonia [None]
